FAERS Safety Report 23927743 (Version 4)
Quarter: 2024Q2

REPORT INFORMATION
  Report Type: Spontaneous
  Country: CZ (occurrence: CZ)
  Receive Date: 20240531
  Receipt Date: 20240621
  Transmission Date: 20240716
  Serious: Yes (Death, Hospitalization, Other)
  Sender: FDA-Public Use
  Company Number: CZ-PFIZER INC-PV202400071801

PATIENT
  Age: 34 Year
  Sex: Male

DRUGS (13)
  1. ISAVUCONAZONIUM SULFATE [Suspect]
     Active Substance: ISAVUCONAZONIUM SULFATE
     Indication: Wound infection fungal
     Dosage: 200 MG, Q8H
  2. ISAVUCONAZONIUM SULFATE [Suspect]
     Active Substance: ISAVUCONAZONIUM SULFATE
     Indication: Aspergillus infection
     Dosage: 200 MG, QD
  3. ANIDULAFUNGIN [Suspect]
     Active Substance: ANIDULAFUNGIN
     Indication: Wound infection fungal
     Dosage: 200 MG, QD
     Route: 042
  4. ANIDULAFUNGIN [Suspect]
     Active Substance: ANIDULAFUNGIN
     Dosage: 100 MG, QD
     Route: 042
  5. FLUCONAZOLE [Suspect]
     Active Substance: FLUCONAZOLE
     Indication: Prophylaxis
     Dosage: 200 MG/24 H
     Route: 042
  6. ARGIPRESSIN [Concomitant]
     Active Substance: ARGIPRESSIN
     Dosage: 0.6-1.8 IU/H
  7. HYDROCORTISONE [Concomitant]
     Active Substance: HYDROCORTISONE\HYDROCORTISONE ACETATE
     Dosage: 50 MG/6H
  8. HUMAN IMMUNOGLOBULIN G [Concomitant]
     Active Substance: HUMAN IMMUNOGLOBULIN G
     Indication: Immunomodulatory therapy
     Dosage: UNK
     Route: 042
  9. LINEZOLID [Concomitant]
     Active Substance: LINEZOLID
     Indication: Wound infection bacterial
     Dosage: 600 MG/12 H, ON DAY 8-DAY 17
  10. MEROPENEM [Concomitant]
     Active Substance: MEROPENEM
     Indication: Wound infection bacterial
     Dosage: 2 G/8 H, ON DAY 11-DAY 17
  11. NOREPINEPHRINE [Concomitant]
     Active Substance: NOREPINEPHRINE\NOREPINEPHRINE BITARTRATE
     Indication: Blood pressure decreased
     Dosage: 0.03-0.91 UG/KG PER MIN
  12. NOREPINEPHRINE [Concomitant]
     Active Substance: NOREPINEPHRINE\NOREPINEPHRINE BITARTRATE
     Dosage: 0.03-1.8 UG/KG/MIN
  13. PIPERACILLIN SODIUM\TAZOBACTAM SODIUM [Concomitant]
     Active Substance: PIPERACILLIN SODIUM\TAZOBACTAM SODIUM
     Indication: Wound infection bacterial
     Dosage: 4.5 G/8H, DAYS 1-10

REACTIONS (5)
  - Drug ineffective [Fatal]
  - Disease progression [Fatal]
  - Treatment failure [Fatal]
  - Septic shock [Fatal]
  - Multiple organ dysfunction syndrome [Fatal]
